FAERS Safety Report 6999210-9 (Version None)
Quarter: 2010Q3

REPORT INFORMATION
  Report Type: 
  Country: None (occurrence: None)
  Receive Date: 20100920
  Receipt Date: 20100309
  Transmission Date: 20110219
  Serious: No
  Sender: FDA-Public Use
  Company Number: US-ASTRAZENECA-2009SE28353

PATIENT
  Age: 51 Year
  Sex: Male
  Weight: 124.3 kg

DRUGS (8)
  1. SEROQUEL [Suspect]
     Indication: INSOMNIA
     Dosage: 100 MG TO 150 MG
     Route: 048
     Dates: start: 20040101, end: 20081201
  2. SEROQUEL [Suspect]
     Indication: DEPRESSION
     Dosage: 100 MG TO 150 MG
     Route: 048
     Dates: start: 20040101, end: 20081201
  3. SEROQUEL [Suspect]
     Indication: POST-TRAUMATIC STRESS DISORDER
     Dosage: 100 MG TO 150 MG
     Route: 048
     Dates: start: 20040101, end: 20081201
  4. MIRTAZAPINE [Concomitant]
     Indication: POST-TRAUMATIC STRESS DISORDER
     Dates: start: 20040101
  5. FENOFIBRATE [Concomitant]
     Indication: BLOOD CHOLESTEROL INCREASED
     Dates: start: 20040101
  6. FENOFIBRATE [Concomitant]
     Indication: BLOOD TRIGLYCERIDES INCREASED
     Dates: start: 20040101
  7. FENOFIBRATE [Concomitant]
     Indication: HYPERLIPIDAEMIA
     Dates: start: 20040101
  8. TRAZODONE HCL [Concomitant]
     Dates: start: 20040101

REACTIONS (8)
  - BLOOD CHOLESTEROL INCREASED [None]
  - BLOOD TRIGLYCERIDES INCREASED [None]
  - DIABETES MELLITUS [None]
  - HYPERLIPIDAEMIA [None]
  - OBESITY [None]
  - PROCEDURAL PAIN [None]
  - TYPE 2 DIABETES MELLITUS [None]
  - WEIGHT INCREASED [None]
